FAERS Safety Report 14232083 (Version 2)
Quarter: 2017Q4

REPORT INFORMATION
  Report Type: Spontaneous
  Country: US (occurrence: US)
  Receive Date: 20171128
  Receipt Date: 20171229
  Transmission Date: 20180321
  Serious: Yes (Other)
  Sender: FDA-Public Use
  Company Number: US-GILEAD-2017-0307018

PATIENT
  Age: 25 Year
  Sex: Male
  Weight: 73.47 kg

DRUGS (6)
  1. ALBUTEROL                          /00139501/ [Concomitant]
     Active Substance: ALBUTEROL
     Route: 055
  2. NIZORAL [Concomitant]
     Active Substance: KETOCONAZOLE
     Indication: TINEA CRURIS
     Dosage: UNK, QD
     Route: 061
     Dates: start: 20171011, end: 20171025
  3. TRUVADA [Suspect]
     Active Substance: EMTRICITABINE\TENOFOVIR DISOPROXIL FUMARATE
     Dosage: 1 DF,QD
     Route: 048
     Dates: start: 20171011, end: 201711
  4. NAPROXEN. [Concomitant]
     Active Substance: NAPROXEN
     Dosage: 500 MG, BID
     Route: 048
  5. TRUVADA [Suspect]
     Active Substance: EMTRICITABINE\TENOFOVIR DISOPROXIL FUMARATE
     Indication: PROPHYLAXIS AGAINST HIV INFECTION
     Dosage: 1 DF,QD
     Route: 048
     Dates: start: 20161023, end: 20161204
  6. ZEASORB [Concomitant]
     Active Substance: MICONAZOLE NITRATE
     Indication: TINEA CRURIS
     Dosage: 1 DF, QD
     Route: 061
     Dates: start: 20171011

REACTIONS (2)
  - Drug ineffective [Unknown]
  - Seroconversion test positive [Unknown]

NARRATIVE: CASE EVENT DATE: 20171113
